FAERS Safety Report 8439102-1 (Version None)
Quarter: 2012Q2

REPORT INFORMATION
  Report Type: 
  Country: None (occurrence: None)
  Receive Date: 20120615
  Receipt Date: 20120607
  Transmission Date: 20120825
  Serious: Yes (Other)
  Sender: FDA-Public Use
  Company Number: US-BAYER-2012-058004

PATIENT
  Age: 91 Year
  Sex: Female
  Weight: 61 kg

DRUGS (13)
  1. FISH OIL [Concomitant]
  2. GLIPIZIDE [Concomitant]
  3. MAGNESIUM [Concomitant]
  4. NIACIN [Concomitant]
  5. ZANTAC [Concomitant]
  6. ALEVE (CAPLET) [Suspect]
     Indication: ANALGESIC THERAPY
     Dosage: 2 DF, Q4HR, BOTTLE COUNT 130CT
     Route: 048
     Dates: start: 20120601, end: 20120602
  7. AMBIEN [Concomitant]
  8. OMEPRAZOLE [Concomitant]
  9. MULTI-VITAMIN [Concomitant]
  10. ONGLYZA [Concomitant]
  11. VITAMIN D [Concomitant]
  12. ASPIRIN [Concomitant]
  13. ISOSORBIDE DINITRATE [Concomitant]

REACTIONS (6)
  - LETHARGY [None]
  - SLOW RESPONSE TO STIMULI [None]
  - SLEEP TALKING [None]
  - SPEECH DISORDER [None]
  - SOMNOLENCE [None]
  - FALL [None]
